FAERS Safety Report 10213309 (Version 2)
Quarter: 2014Q2

REPORT INFORMATION
  Report Type: Report from Study
  Country: US (occurrence: US)
  Receive Date: 20140603
  Receipt Date: 20140603
  Transmission Date: 20141212
  Serious: Yes (Other)
  Sender: FDA-Public Use
  Company Number: US-ROCHE-1222184

PATIENT
  Sex: Female
  Weight: 94.43 kg

DRUGS (14)
  1. RITUXAN [Suspect]
     Indication: RHEUMATOID ARTHRITIS
     Route: 042
     Dates: start: 2012
  2. RITUXAN [Suspect]
     Indication: MICROSCOPIC POLYANGIITIS
  3. TRAMADOL [Concomitant]
     Indication: PAIN
     Route: 048
  4. CELLCEPT [Concomitant]
     Route: 048
     Dates: start: 2012
  5. METFORMIN HYDROCHLORIDE [Concomitant]
     Indication: DIABETES MELLITUS
     Route: 048
  6. LISINOPRIL [Concomitant]
     Indication: HYPERTENSION
     Route: 048
  7. BROMOCRIPTINE [Concomitant]
     Indication: PITUITARY TUMOUR
     Route: 048
  8. BROMOCRIPTINE [Concomitant]
     Indication: PITUITARY-DEPENDENT CUSHING^S SYNDROME
  9. BACTRIM [Concomitant]
     Route: 065
  10. LORTAB [Concomitant]
  11. SOLU-MEDROL [Concomitant]
  12. PREDNISONE [Concomitant]
     Indication: MICROSCOPIC POLYANGIITIS
     Route: 048
     Dates: start: 2008
  13. ESTRADIOL [Concomitant]
     Indication: MENOPAUSAL SYMPTOMS
     Route: 065
  14. BENADRYL (UNITED STATES) [Concomitant]

REACTIONS (11)
  - Pain [Not Recovered/Not Resolved]
  - Pituitary tumour [Not Recovered/Not Resolved]
  - Infusion related reaction [Recovered/Resolved]
  - Dizziness [Unknown]
  - Syncope [Unknown]
  - Heart rate increased [Unknown]
  - Nausea [Unknown]
  - Mood altered [Unknown]
  - Visual impairment [Unknown]
  - Eye pain [Not Recovered/Not Resolved]
  - Dyspnoea [Unknown]
